FAERS Safety Report 7932131-3 (Version None)
Quarter: 2011Q4

REPORT INFORMATION
  Report Type: 
  Country: None (occurrence: None)
  Receive Date: 20111121
  Receipt Date: 20111028
  Transmission Date: 20120403
  Serious: No
  Sender: FDA-Public Use
  Company Number: US-ROXANE LABORATORIES, INC.-2011-RO-01419RO

PATIENT
  Sex: Female

DRUGS (6)
  1. PLENDIL [Concomitant]
     Indication: HYPERTENSION
     Dosage: 5 MG
  2. CELEXA [Concomitant]
     Indication: MIGRAINE PROPHYLAXIS
     Dosage: 20 MG
  3. ALLEGRA [Concomitant]
     Indication: MULTIPLE ALLERGIES
     Dosage: 180 MG
  4. INDERAL [Concomitant]
     Indication: MIGRAINE PROPHYLAXIS
     Dosage: 80 MG
  5. FLUTICASONE PROPIONATE [Suspect]
     Indication: MULTIPLE ALLERGIES
     Route: 045
     Dates: start: 20060101
  6. DIOVAN [Concomitant]
     Indication: HYPERTENSION
     Dosage: 80 MG

REACTIONS (4)
  - COUGH [None]
  - PRODUCT MEASURED POTENCY ISSUE [None]
  - CHOKING [None]
  - RETCHING [None]
